FAERS Safety Report 14840743 (Version 1)
Quarter: 2018Q2

REPORT INFORMATION
  Report Type: Spontaneous
  Country: US (occurrence: US)
  Receive Date: 20180503
  Receipt Date: 20180503
  Transmission Date: 20180711
  Serious: No
  Sender: FDA-Public Use
  Company Number: US-PFIZER INC-2016120223

PATIENT
  Age: 49 Year
  Sex: Female
  Weight: 58 kg

DRUGS (1)
  1. METHOTREXATE SODIUM. [Suspect]
     Active Substance: METHOTREXATE SODIUM
     Indication: RHEUMATOID ARTHRITIS
     Dosage: 0.6 ML, WEEKLY
     Route: 058
     Dates: start: 201502

REACTIONS (6)
  - Upper-airway cough syndrome [Unknown]
  - Drug ineffective [Unknown]
  - Fatigue [Recovering/Resolving]
  - Joint swelling [Not Recovered/Not Resolved]
  - Cough [Unknown]
  - Stress fracture [Unknown]
